FAERS Safety Report 4284352-1 (Version None)
Quarter: 2004Q1

REPORT INFORMATION
  Report Type: 
  Country: None (occurrence: None)
  Receive Date: 20040130
  Receipt Date: 20040130
  Transmission Date: 20041129
  Serious: Yes (Hospitalization)
  Sender: FDA-Public Use
  Company Number: None

PATIENT
  Age: 76 Year
  Sex: Male
  Weight: 65.7716 kg

DRUGS (5)
  1. SIMVASTATIN [Suspect]
     Indication: HYPERLIPIDAEMIA
     Dosage: 1 PO QD
     Route: 048
  2. ATENOLOL [Concomitant]
  3. FOSINOPRIL SODIUM [Concomitant]
  4. HYDROCHLOROTHIAZIDE [Concomitant]
  5. MIRTAZAPINE [Concomitant]

REACTIONS (3)
  - FALL [None]
  - RENAL FAILURE ACUTE [None]
  - RHABDOMYOLYSIS [None]
